FAERS Safety Report 4771148-7 (Version None)
Quarter: 2005Q3

REPORT INFORMATION
  Report Type: 
  Country: None (occurrence: None)
  Receive Date: 20050914
  Receipt Date: 20050906
  Transmission Date: 20060218
  Serious: Yes (Hospitalization)
  Sender: FDA-Public Use
  Company Number: 2005-07-2062

PATIENT
  Age: 51 Year
  Sex: Female
  Weight: 82.5547 kg

DRUGS (7)
  1. PEG-INTRON [Suspect]
     Indication: HEPATITIS C
     Dosage: 150 MCG QWK* SUBCUTANEOUS
     Route: 058
     Dates: start: 20050201, end: 20050722
  2. PEG-INTRON [Suspect]
     Indication: HEPATITIS C
     Dosage: 150 MCG QWK* SUBCUTANEOUS
     Route: 058
     Dates: start: 20050807
  3. MILK THISTLE FRUIT [Concomitant]
  4. VITAMIN B-12 [Concomitant]
  5. VITAMIN B12 INJ [Concomitant]
  6. MULTI-VITAMINS [Concomitant]
  7. IBUPROFEN [Concomitant]

REACTIONS (10)
  - CELLULITIS [None]
  - DECREASED IMMUNE RESPONSIVENESS [None]
  - DYSGEUSIA [None]
  - GLOSSODYNIA [None]
  - HERPES SIMPLEX [None]
  - ILL-DEFINED DISORDER [None]
  - NAIL AVULSION [None]
  - PARONYCHIA [None]
  - PHARYNGOLARYNGEAL PAIN [None]
  - STRESS [None]
